FAERS Safety Report 5595646-1 (Version None)
Quarter: 2008Q1

REPORT INFORMATION
  Report Type: 
  Country: None (occurrence: None)
  Receive Date: 20080118
  Receipt Date: 20080107
  Transmission Date: 20080703
  Serious: Yes (Death)
  Sender: FDA-Public Use
  Company Number: US-WYE-H02027408

PATIENT
  Age: 50 Year
  Sex: Male

DRUGS (2)
  1. IBUPROFEN [Suspect]
     Dosage: UNKNOWN
     Route: 048
     Dates: start: 20060101, end: 20060101
  2. HYDROCODONE BITARTRATE + ACETAMINOPHEN [Suspect]
     Dosage: UNKNOWN
     Route: 048

REACTIONS (1)
  - INTENTIONAL DRUG MISUSE [None]
